FAERS Safety Report 15261442 (Version 1)
Quarter: 2018Q3

REPORT INFORMATION
  Report Type: Report from Study
  Country: CZ (occurrence: CZ)
  Receive Date: 20180809
  Receipt Date: 20180809
  Transmission Date: 20181010
  Serious: Yes (Hospitalization)
  Sender: FDA-Public Use
  Company Number: CZ-ASTRAZENECA-2018SE89509

PATIENT
  Age: 24410 Day
  Sex: Male

DRUGS (7)
  1. AZD6140 [Suspect]
     Active Substance: TICAGRELOR
     Indication: CARDIOVASCULAR EVENT PROPHYLAXIS
     Route: 048
     Dates: start: 20180606, end: 20180701
  2. TIMOLOL. [Concomitant]
     Active Substance: TIMOLOL
     Indication: GLAUCOMA
     Route: 047
  3. PRESTARIUM COMBI [Concomitant]
     Indication: HYPERTENSION
     Route: 048
     Dates: start: 20180608
  4. AGEN [Concomitant]
     Active Substance: AMLODIPINE BESYLATE
     Indication: HYPERTENSION
     Route: 048
     Dates: start: 20180606
  5. RILMENIDINE [Concomitant]
     Active Substance: RILMENIDINE
     Indication: HYPERTENSION
     Route: 048
     Dates: start: 20180609
  6. BETALOCK ZOK [Concomitant]
     Indication: HYPERTENSION
     Route: 048
     Dates: start: 20180607
  7. ANOPYRIN [Concomitant]
     Active Substance: ASPIRIN
     Indication: THROMBOSIS PROPHYLAXIS
     Route: 048
     Dates: start: 20180606

REACTIONS (1)
  - Pulmonary embolism [Recovering/Resolving]

NARRATIVE: CASE EVENT DATE: 20180702
